FAERS Safety Report 7328963-5 (Version None)
Quarter: 2011Q1

REPORT INFORMATION
  Report Type: 
  Country: None (occurrence: None)
  Receive Date: 20110225
  Receipt Date: 20110225
  Transmission Date: 20110831
  Serious: Yes (Other)
  Sender: FDA-Public Use
  Company Number: None

PATIENT
  Age: 39 Year
  Sex: Female
  Weight: 69.4003 kg

DRUGS (1)
  1. DEPO-PROVERA [Suspect]
     Indication: MENSTRUAL DISORDER
     Dosage: EVERY 13 WEEKS IM
     Route: 030
     Dates: start: 20080623, end: 20100923

REACTIONS (15)
  - MIGRAINE [None]
  - DRY SKIN [None]
  - FATIGUE [None]
  - ACNE [None]
  - PANIC ATTACK [None]
  - AMNESIA [None]
  - WEIGHT INCREASED [None]
  - MAJOR DEPRESSION [None]
  - MOOD SWINGS [None]
  - LEARNING DISABILITY [None]
  - PSORIASIS [None]
  - PSORIATIC ARTHROPATHY [None]
  - ALOPECIA [None]
  - OSTEOARTHRITIS [None]
  - IRRITABILITY [None]
